FAERS Safety Report 12730211 (Version 3)
Quarter: 2017Q3

REPORT INFORMATION
  Report Type: Spontaneous
  Country: US (occurrence: US)
  Receive Date: 20160909
  Receipt Date: 20170725
  Transmission Date: 20171127
  Serious: No
  Sender: FDA-Public Use
  Company Number: US-CELGENEUS-USA-2016090413

PATIENT
  Sex: Female
  Weight: 60.38 kg

DRUGS (1)
  1. OTEZLA [Suspect]
     Active Substance: APREMILAST
     Indication: PSORIASIS
     Dosage: 60 MILLIGRAM
     Route: 048
     Dates: start: 20160714, end: 20160826

REACTIONS (6)
  - Diarrhoea [Recovered/Resolved]
  - Discomfort [Unknown]
  - Weight decreased [Recovered/Resolved]
  - Vertigo [Recovered/Resolved]
  - Drug ineffective [Unknown]
  - Decreased appetite [Recovered/Resolved]

NARRATIVE: CASE EVENT DATE: 20160728
